FAERS Safety Report 15560342 (Version 2)
Quarter: 2018Q4

REPORT INFORMATION
  Report Type: Spontaneous
  Country: US (occurrence: US)
  Receive Date: 20181029
  Receipt Date: 20181211
  Transmission Date: 20190205
  Serious: Yes (Hospitalization)
  Sender: FDA-Public Use
  Company Number: US-JNJFOC-20181021118

PATIENT
  Age: 87 Year
  Sex: Male

DRUGS (14)
  1. ASPIRIN. [Suspect]
     Active Substance: ASPIRIN
     Indication: PRODUCT USED FOR UNKNOWN INDICATION
     Dosage: IN THE MORNING
     Route: 065
     Dates: end: 20181008
  2. METOPROLOL. [Concomitant]
     Active Substance: METOPROLOL
     Indication: CARDIAC DISORDER
     Dosage: IN THE MORNING
     Route: 048
  3. PRAVASTATIN. [Concomitant]
     Active Substance: PRAVASTATIN
     Dosage: AT NIGHT
     Route: 065
  4. XARELTO [Suspect]
     Active Substance: RIVAROXABAN
     Indication: THROMBOSIS
     Route: 048
     Dates: end: 20181008
  5. METFORMIN [Concomitant]
     Active Substance: METFORMIN HYDROCHLORIDE
     Indication: DIABETES MELLITUS
     Dosage: IN THE MORNING AND NIGHT
     Route: 048
  6. XARELTO [Suspect]
     Active Substance: RIVAROXABAN
     Indication: THROMBOSIS
     Dosage: STARTED ABOUT 5 YEARS AGO; WAS TAKEN IN THE MORNING
     Route: 048
  7. FISH OIL [Concomitant]
     Active Substance: FISH OIL
     Indication: CARDIAC DISORDER
     Dosage: IN THE MORNING AND NIGHT
     Route: 048
  8. ROPINIROLE. [Concomitant]
     Active Substance: ROPINIROLE
     Dosage: IN THE MORNING AND NIGHT
     Route: 065
  9. AVODART [Concomitant]
     Active Substance: DUTASTERIDE
     Dosage: IN THE MORNING
     Route: 048
  10. RAMIPRIL. [Concomitant]
     Active Substance: RAMIPRIL
     Dosage: IN THE MORNING
     Route: 065
  11. ALLOPURINOL. [Concomitant]
     Active Substance: ALLOPURINOL
     Indication: GOUT
     Dosage: IN THE MORNING
     Route: 048
  12. VITAMIN D3 [Concomitant]
     Active Substance: CHOLECALCIFEROL
     Indication: CARDIAC DISORDER
     Dosage: IN THE MORNING
     Route: 048
  13. GLIPIZIDE. [Concomitant]
     Active Substance: GLIPIZIDE
     Dosage: IN THE MORNING AND NIGHT
     Route: 065
  14. RANITIDINE. [Concomitant]
     Active Substance: RANITIDINE
     Dosage: IN THE MORNING
     Route: 065

REACTIONS (2)
  - Post procedural haemorrhage [Recovered/Resolved]
  - Large intestine polyp [Unknown]

NARRATIVE: CASE EVENT DATE: 20181006
